FAERS Safety Report 7274598-2 (Version None)
Quarter: 2011Q1

REPORT INFORMATION
  Report Type: 
  Country: None (occurrence: None)
  Receive Date: 20110202
  Receipt Date: 20110202
  Transmission Date: 20110831
  Serious: Yes (Hospitalization)
  Sender: FDA-Public Use
  Company Number: None

PATIENT
  Age: 36 Year
  Sex: Female
  Weight: 52.1637 kg

DRUGS (1)
  1. EFFEXOR [Suspect]

REACTIONS (20)
  - NIGHTMARE [None]
  - MUSCLE TWITCHING [None]
  - HYPOAESTHESIA [None]
  - PARAESTHESIA [None]
  - HYPERACUSIS [None]
  - CEREBRAL DISORDER [None]
  - ANXIETY [None]
  - TREMOR [None]
  - PYREXIA [None]
  - DRUG WITHDRAWAL SYNDROME [None]
  - HYPERHIDROSIS [None]
  - INSOMNIA [None]
  - VOMITING [None]
  - PHOTOPHOBIA [None]
  - CHILLS [None]
  - NAUSEA [None]
  - DEHYDRATION [None]
  - MYALGIA [None]
  - BURNING SENSATION [None]
  - HYPERAESTHESIA [None]
